FAERS Safety Report 10703806 (Version 6)
Quarter: 2019Q1

REPORT INFORMATION
  Report Type: Spontaneous
  Country: US (occurrence: US)
  Receive Date: 20150112
  Receipt Date: 20190221
  Transmission Date: 20190417
  Serious: No
  Sender: FDA-Public Use
  Company Number: US-PFIZER INC-2015008849

PATIENT
  Age: 61 Year
  Sex: Female

DRUGS (12)
  1. ATIVAN [Concomitant]
     Active Substance: LORAZEPAM
     Dosage: 2 MG, UNK
     Route: 048
  2. LYRICA [Suspect]
     Active Substance: PREGABALIN
     Indication: MIGRAINE WITHOUT AURA
     Dosage: 300 MG, 2X/DAY [TAKE ONE CAPSULE (300 MG TOTAL) BY MOUTH 2 (TWO) TIMES DAILY]
     Route: 048
     Dates: start: 20190208
  3. ATIVAN [Concomitant]
     Active Substance: LORAZEPAM
     Dosage: UNK, AS NEEDED [TAKE 1/2 TO 1 TABLET BY MOUTH 4 TIMES A DAY AS NEEDED]
     Route: 048
  4. ALBUTEROL INHALER [Concomitant]
     Active Substance: ALBUTEROL
     Dosage: UNK
  5. TOPAMAX [Concomitant]
     Active Substance: TOPIRAMATE
     Dosage: 1000, 2X/DAY
  6. SOMA [Concomitant]
     Active Substance: CARISOPRODOL
     Dosage: 350, 4X/DAY
  7. HYDRODCODONE [Concomitant]
     Dosage: UNK UNK, 4X/DAY
  8. IPRATROPIUM BROMIDE NASAL SOLUTION 0.0320 [Concomitant]
  9. LYRICA [Suspect]
     Active Substance: PREGABALIN
     Indication: FIBROMYALGIA
     Dosage: UNK (REPORTED AS FOUR YEARS AGO)
  10. ESCITALOPRAM [Concomitant]
     Active Substance: ESCITALOPRAM OXALATE
     Dosage: 20 MG, 1 AT BEDTIME
  11. ADVAIR HFA [Concomitant]
     Active Substance: FLUTICASONE PROPIONATE\SALMETEROL XINAFOATE
     Dosage: 2 PUFFS BY MOUTH, 2X/DAY
     Route: 048
  12. SINGULAIR [Concomitant]
     Active Substance: MONTELUKAST SODIUM
     Dosage: UNK, 1X/DAY

REACTIONS (7)
  - Drug ineffective [Not Recovered/Not Resolved]
  - Dry eye [Unknown]
  - Bladder disorder [Not Recovered/Not Resolved]
  - Asthma [Unknown]
  - Abdominal discomfort [Not Recovered/Not Resolved]
  - Diarrhoea [Not Recovered/Not Resolved]
  - Stress [Unknown]
